FAERS Safety Report 19804105 (Version 1)
Quarter: 2021Q3

REPORT INFORMATION
  Report Type: Spontaneous
  Country: CN (occurrence: CN)
  Receive Date: 20210908
  Receipt Date: 20210908
  Transmission Date: 20211014
  Serious: Yes (Other)
  Sender: FDA-Public Use
  Company Number: CN-PFIZER INC-202101155509

PATIENT
  Age: 71 Year
  Sex: Male

DRUGS (2)
  1. MEROPENEM. [Suspect]
     Active Substance: MEROPENEM
     Indication: PNEUMONITIS
     Dosage: 1.5 G, 3X/DAY (TID)
     Route: 041
  2. SODIUM VALPROATE [Interacting]
     Active Substance: VALPROATE SODIUM
     Dosage: UNK

REACTIONS (3)
  - Labelled drug-drug interaction issue [Unknown]
  - Labelled drug-drug interaction medication error [Unknown]
  - Petit mal epilepsy [Unknown]
